FAERS Safety Report 4975197-5 (Version None)
Quarter: 2006Q2

REPORT INFORMATION
  Report Type: 
  Country: None (occurrence: None)
  Receive Date: 20060411
  Receipt Date: 20060329
  Transmission Date: 20061013
  Serious: Yes (Hospitalization)
  Sender: FDA-Public Use
  Company Number: FRP06000356

PATIENT
  Age: 37 Year
  Sex: Male

DRUGS (2)
  1. ACTONEL [Suspect]
     Dosage: 35 MG, 1/WEEK, ORAL
     Route: 048
     Dates: start: 20060120
  2. PREDNISONE TAB [Concomitant]

REACTIONS (1)
  - CYTOLYTIC HEPATITIS [None]
